FAERS Safety Report 25021045 (Version 1)
Quarter: 2025Q1

REPORT INFORMATION
  Report Type: Spontaneous
  Country: IL (occurrence: IL)
  Receive Date: 20250227
  Receipt Date: 20250227
  Transmission Date: 20250409
  Serious: Yes (Other)
  Sender: PFIZER
  Company Number: IL-PFIZER INC-PV202500022383

PATIENT
  Age: 41 Year
  Sex: Male

DRUGS (4)
  1. FLUCONAZOLE [Interacting]
     Active Substance: FLUCONAZOLE
     Indication: Candida infection
     Dosage: 400 MG, DAILY
  2. CLOPIDOGREL [Interacting]
     Active Substance: CLOPIDOGREL BISULFATE
     Indication: Antiplatelet therapy
     Dosage: 75 MG, DAILY
  3. ASPIRIN [Concomitant]
     Active Substance: ASPIRIN
     Indication: Antiplatelet therapy
     Dosage: 100 MG, DAILY
  4. METFORMIN [Concomitant]
     Active Substance: METFORMIN HYDROCHLORIDE
     Indication: Diabetes mellitus
     Dosage: 850 MG, 2X/DAY

REACTIONS (3)
  - Inhibitory drug interaction [Unknown]
  - Coagulation time shortened [Unknown]
  - Electrocardiogram QT prolonged [Unknown]
